FAERS Safety Report 7251271-8 (Version None)
Quarter: 2011Q1

REPORT INFORMATION
  Report Type: 
  Country: None (occurrence: None)
  Receive Date: 20110128
  Receipt Date: 20110119
  Transmission Date: 20110831
  Serious: Yes (Death)
  Sender: FDA-Public Use
  Company Number: GB-JNJFOC-20100407036

PATIENT
  Age: 78 Year
  Sex: Female
  Weight: 50 kg

DRUGS (13)
  1. LEFLUNOMIDE [Concomitant]
  2. AMITRIPTYLINE HCL [Concomitant]
  3. DIHYDROCODEINE BITARTRATE INJ [Concomitant]
  4. REMICADE [Suspect]
     Indication: RHEUMATOID ARTHRITIS
     Route: 042
  5. PREDNISOLONE [Concomitant]
  6. LANSOPRAZOLE [Concomitant]
  7. NAPROXEN [Concomitant]
  8. WARFARIN [Concomitant]
  9. ACETAMINOPHEN WITH PROPOXYPHENE HCL TAB [Concomitant]
  10. FOLIC ACID [Concomitant]
  11. ADCAL D3 [Concomitant]
  12. RISEDRONATE SODIUM [Concomitant]
  13. DIGOXIN [Concomitant]

REACTIONS (3)
  - BRONCHOPNEUMONIA [None]
  - MYOCARDIAL ISCHAEMIA [None]
  - LUNG ABSCESS [None]
